FAERS Safety Report 21719126 (Version 2)
Quarter: 2022Q4

REPORT INFORMATION
  Report Type: Spontaneous
  Country: FR (occurrence: FR)
  Receive Date: 20221213
  Receipt Date: 20221215
  Transmission Date: 20230113
  Serious: Yes (Death, Other)
  Sender: FDA-Public Use
  Company Number: FR-BAXTER-2022BAX026260

PATIENT
  Age: 75 Year
  Sex: Female

DRUGS (3)
  1. CYCLOPHOSPHAMIDE [Suspect]
     Active Substance: CYCLOPHOSPHAMIDE
     Indication: Product used for unknown indication
     Dosage: UNK (300 MG/M2/DOSE 1 DOSE(S)/WEEK 3 WEEK(S)/CYCLE (TREATMENT LINE NUMBER 1, DURATION: 1.4 MONTHS))
     Route: 065
  2. DEXAMETHASONE [Suspect]
     Active Substance: DEXAMETHASONE
     Indication: Product used for unknown indication
     Dosage: UNK (20 MG/DOSE 2 DOSE(S)/WEEK 4 WEEK(S)/CYCLE (TREATMENT LINE NUMBER 1, DURATION: 1.4 MONTHS))
     Route: 065
  3. BORTEZOMIB [Suspect]
     Active Substance: BORTEZOMIB
     Indication: Product used for unknown indication
     Dosage: UNK (1.3 MG/M2/DOSE 1 DOSE(S)/WEEK 4 WEEK(S)/CYCLE (TREATMENT LINE NUMBER 1, DURATION: 1.4 MONTHS))
     Route: 065

REACTIONS (1)
  - Death [Fatal]

NARRATIVE: CASE EVENT DATE: 20210128
